FAERS Safety Report 6264487-4 (Version None)
Quarter: 2009Q3

REPORT INFORMATION
  Report Type: 
  Country: None (occurrence: None)
  Receive Date: 20090708
  Receipt Date: 20090626
  Transmission Date: 20100115
  Serious: Yes (Disabling)
  Sender: FDA-Public Use
  Company Number: OSCN-NO-0901S-0033

PATIENT
  Age: 69 Year
  Sex: Male

DRUGS (10)
  1. OMNISCAN [Suspect]
     Indication: NEPHRECTOMY
     Dosage: 15 ML, SINGLE DOSE, I.V.
     Route: 042
     Dates: start: 20000905, end: 20000905
  2. OMNISCAN [Suspect]
     Indication: NEPHRECTOMY
     Dosage: 15 ML, SINGLE DOSE, I.V.
     Route: 042
     Dates: start: 20021203, end: 20021203
  3. GADOLINIUM (UNSPECIFIED) [Concomitant]
  4. EPOETIN BETA (NEORECORMON) [Concomitant]
  5. DIALYSIS VITAMINS [Concomitant]
  6. MIRTAZAPINE [Concomitant]
  7. HALOPERIDOL [Concomitant]
  8. QUININE [Concomitant]
  9. METOCLOPRAMIDE [Concomitant]
  10. LACTULOSE [Concomitant]

REACTIONS (13)
  - AORTIC ARTERIOSCLEROSIS [None]
  - BLOOD CALCIUM INCREASED [None]
  - BLOOD CREATININE INCREASED [None]
  - BLOOD PHOSPHORUS INCREASED [None]
  - CARDIOLIPIN ANTIBODY POSITIVE [None]
  - CARDIOMEGALY [None]
  - DYSPEPSIA [None]
  - DYSPNOEA [None]
  - GASTROOESOPHAGEAL REFLUX DISEASE [None]
  - HAEMODIALYSIS [None]
  - HIATUS HERNIA [None]
  - NEPHROGENIC SYSTEMIC FIBROSIS [None]
  - OEDEMA [None]
